FAERS Safety Report 19535820 (Version 1)
Quarter: 2021Q3

REPORT INFORMATION
  Report Type: Report from Study
  Country: US (occurrence: US)
  Receive Date: 20210713
  Receipt Date: 20210713
  Transmission Date: 20211014
  Serious: No
  Sender: FDA-Public Use
  Company Number: NVSC2021US149376

PATIENT
  Sex: Female

DRUGS (1)
  1. ENTRESTO [Suspect]
     Active Substance: SACUBITRIL\VALSARTAN
     Indication: CARDIOMYOPATHY
     Dosage: 100 MG (49/51 MG DIRECTIONS 1 AND 1/2 TABS BY MOUTH QAM AND 1/2 TABLET BY MOUTH QPM)
     Route: 065

REACTIONS (2)
  - Wrong technique in product usage process [Unknown]
  - Product use in unapproved indication [Unknown]
